FAERS Safety Report 8906446 (Version 1)
Quarter: 2012Q4

REPORT INFORMATION
  Report Type: 
  Country: US (occurrence: None)
  Receive Date: 20121108
  Receipt Date: 20121108
  Transmission Date: 20130627
  Serious: Yes (Hospitalization)
  Sender: FDA-Public Use
  Company Number: PRED20120066

PATIENT
  Age: 22 Year
  Sex: Female

DRUGS (2)
  1. PREDNISONE [Suspect]
     Indication: MYASTHENIA GRAVIS
  2. RITUXIMAB [Suspect]
     Dosage: four weekly doses at six months interval

REACTIONS (3)
  - Mastoiditis [None]
  - Hypogammaglobulinaemia [None]
  - Myasthenia gravis [None]
